FAERS Safety Report 5253105-X (Version None)
Quarter: 2007Q1

REPORT INFORMATION
  Report Type: 
  Country: None (occurrence: None)
  Receive Date: 20070301
  Receipt Date: 20070226
  Transmission Date: 20070707
  Serious: Yes (Other)
  Sender: FDA-Public Use
  Company Number: US-GLAXOSMITHKLINE-A0640958A

PATIENT
  Age: 81 Year
  Sex: Female

DRUGS (6)
  1. ADVAIR DISKUS 100/50 [Suspect]
     Indication: CHRONIC OBSTRUCTIVE PULMONARY DISEASE
     Dosage: 1PUFF TWICE PER DAY
     Route: 055
  2. QUINAPRIL [Concomitant]
  3. FUROSEMIDE [Concomitant]
  4. HYDROCODONE [Concomitant]
  5. TYLENOL [Concomitant]
  6. VYTORIN [Concomitant]

REACTIONS (5)
  - BREAST CANCER [None]
  - BRONCHITIS [None]
  - DYSPNOEA [None]
  - RESPIRATORY DISORDER [None]
  - THERAPEUTIC RESPONSE DECREASED [None]
